FAERS Safety Report 10592332 (Version 1)
Quarter: 2014Q4

REPORT INFORMATION
  Report Type: Spontaneous
  Country: UG (occurrence: None)
  Receive Date: 20141117
  Receipt Date: 20141117
  Transmission Date: 20150529
  Serious: Yes (Life-Threatening, Hospitalization, Other)
  Sender: FDA-Public Use
  Company Number: UG2014GSK021125

PATIENT
  Age: 36 Year
  Sex: Male

DRUGS (4)
  1. COTRIMOXAZOLE (SULFAMETHOXAZOLE + TRIMETHOPRIM) [Concomitant]
  2. ZIDOVUDINE. [Suspect]
     Active Substance: ZIDOVUDINE
     Indication: HIV INFECTION
     Dates: start: 20140507, end: 20140605
  3. LAMIVUDINE. [Suspect]
     Active Substance: LAMIVUDINE
     Indication: HIV INFECTION
     Dates: start: 20140507, end: 20140605
  4. EFAVIRENZ [Concomitant]
     Active Substance: EFAVIRENZ

REACTIONS (3)
  - Tuberculosis [None]
  - Pulmonary tuberculosis [None]
  - Anaemia [None]

NARRATIVE: CASE EVENT DATE: 20140501
